FAERS Safety Report 9704224 (Version 3)
Quarter: 2013Q4

REPORT INFORMATION
  Report Type: Spontaneous
  Country: JP (occurrence: JP)
  Receive Date: 20131122
  Receipt Date: 20131210
  Transmission Date: 20140711
  Serious: Yes (Other)
  Sender: FDA-Public Use
  Company Number: JP-PFIZER INC-2013324038

PATIENT
  Sex: Male

DRUGS (3)
  1. SOLANAX [Suspect]
     Dosage: 0.4 MG, 1X/DAY
     Route: 048
     Dates: end: 201311
  2. LOXONIN [Suspect]
     Dosage: UNK
  3. CERCINE [Suspect]
     Dosage: UNK

REACTIONS (5)
  - Anaphylactic shock [Unknown]
  - Dyspnoea [Unknown]
  - Throat irritation [Unknown]
  - Dizziness [Unknown]
  - Palpitations [Recovered/Resolved]
